FAERS Safety Report 5744143-9 (Version None)
Quarter: 2008Q2

REPORT INFORMATION
  Report Type: 
  Country: None (occurrence: None)
  Receive Date: 20080520
  Receipt Date: 20080516
  Transmission Date: 20081010
  Serious: Yes (Hospitalization)
  Sender: FDA-Public Use
  Company Number: B0521194A

PATIENT
  Age: 40 Year
  Sex: Male
  Weight: 106 kg

DRUGS (9)
  1. SERETIDE [Suspect]
     Indication: ASTHMA
     Route: 055
     Dates: start: 20080501, end: 20080510
  2. IKOREL [Concomitant]
     Route: 048
  3. VENTOLIN [Concomitant]
     Route: 055
  4. IRBESARTAN [Concomitant]
     Route: 048
  5. HYDROCHLOROTHIAZIDE [Concomitant]
     Route: 048
  6. OMACOR [Concomitant]
     Route: 048
  7. TELFAST [Concomitant]
     Route: 048
  8. PROSCAR [Concomitant]
     Route: 048
  9. RIMONABANT [Concomitant]
     Route: 048

REACTIONS (2)
  - CHEST PAIN [None]
  - HYPERVENTILATION [None]
